FAERS Safety Report 11030394 (Version 3)
Quarter: 2015Q2

REPORT INFORMATION
  Report Type: Spontaneous
  Country: US (occurrence: None)
  Receive Date: 20150413
  Receipt Date: 20150612
  Transmission Date: 20150821
  Serious: Yes (Hospitalization)
  Sender: FDA-Public Use
  Company Number: US-H14001-15-00524

PATIENT
  Age: 66 Year
  Sex: Male
  Weight: 78.88 kg

DRUGS (9)
  1. PREDNISONE. [Suspect]
     Active Substance: PREDNISONE
     Indication: RICHTER^S SYNDROME
     Dosage: 100 MG, DAYS 1-5, ORAL
     Route: 048
     Dates: start: 20140620, end: 20140625
  2. ADRIAMYCIN [Suspect]
     Active Substance: DOXORUBICIN HYDROCHLORIDE
     Indication: RICHTER^S SYNDROME
     Route: 042
     Dates: start: 20140621, end: 20140621
  3. ALLOPURINOL. [Concomitant]
     Active Substance: ALLOPURINOL
  4. AMOXICILLIN-CLAVULANATE (SPEKTRAMOX) (UNKNOWN) (CLAVULANATE POTASSIUM, AMOXICILLIN TRIHYDRATE) [Concomitant]
  5. RITUXAN [Suspect]
     Active Substance: RITUXIMAB
     Indication: RICHTER^S SYNDROME
     Route: 042
     Dates: start: 20140620, end: 20140621
  6. ACETAMINOPHEN (PARACETAMOL) [Concomitant]
     Active Substance: ACETAMINOPHEN
  7. INSULIN ASPART [Concomitant]
     Active Substance: INSULIN ASPART
  8. VINCRISTINE (VINCRISTINE) (UNKNOWN) (VINCRISTINE) [Suspect]
     Active Substance: VINCRISTINE
     Indication: RICHTER^S SYNDROME
     Dosage: (2 MG ONCE), INTRAVENOUS (NOT OTHERWISE SPECIFIED)?
     Route: 042
     Dates: start: 20140621, end: 20140621
  9. CYTOXAN [Suspect]
     Active Substance: CYCLOPHOSPHAMIDE
     Indication: RICHTER^S SYNDROME
     Route: 042
     Dates: start: 20140621, end: 20140621

REACTIONS (4)
  - Perirectal abscess [None]
  - Haemorrhoids [None]
  - Inflammation [None]
  - Neutropenia [None]

NARRATIVE: CASE EVENT DATE: 2014
